FAERS Safety Report 8792520 (Version 2)
Quarter: 2015Q1

REPORT INFORMATION
  Report Type: Report from Study
  Country: US (occurrence: US)
  Receive Date: 20120918
  Receipt Date: 20150331
  Transmission Date: 20150721
  Serious: Yes (Death)
  Sender: FDA-Public Use
  Company Number: US-ROCHE-1127136

PATIENT
  Sex: Male

DRUGS (9)
  1. AVASTIN [Suspect]
     Active Substance: BEVACIZUMAB
     Indication: METASTATIC NEOPLASM
     Route: 042
     Dates: start: 20100802
  2. TAXOL [Concomitant]
     Active Substance: PACLITAXEL
     Route: 042
  3. BENADRYL [Concomitant]
     Active Substance: DIPHENHYDRAMINE HYDROCHLORIDE
     Route: 042
  4. FAMOTIDINE. [Concomitant]
     Active Substance: FAMOTIDINE
     Route: 042
  5. CARBOPLATIN. [Concomitant]
     Active Substance: CARBOPLATIN
     Route: 042
  6. TAXOL [Concomitant]
     Active Substance: PACLITAXEL
     Route: 042
  7. ALOXI [Concomitant]
     Active Substance: PALONOSETRON HYDROCHLORIDE
     Route: 042
  8. AVASTIN [Suspect]
     Active Substance: BEVACIZUMAB
     Indication: MALIGNANT MELANOMA
     Route: 042
  9. DEXAMETHASONE. [Concomitant]
     Active Substance: DEXAMETHASONE
     Route: 042

REACTIONS (6)
  - Pain in extremity [Unknown]
  - Nausea [Unknown]
  - Vomiting [Unknown]
  - Peripheral swelling [Unknown]
  - Off label use [Unknown]
  - Death [Fatal]
